FAERS Safety Report 6914687-2 (Version None)
Quarter: 2010Q3

REPORT INFORMATION
  Report Type: 
  Country: None (occurrence: None)
  Receive Date: 20100805
  Receipt Date: 20100805
  Transmission Date: 20110219
  Serious: Yes (Hospitalization)
  Sender: FDA-Public Use
  Company Number: None

PATIENT
  Age: 56 Year
  Sex: Male
  Weight: 54.4316 kg

DRUGS (9)
  1. ADRIAMYCIN PFS [Suspect]
     Indication: DIFFUSE LARGE B-CELL LYMPHOMA
     Dosage: ADRIA IVP Q 2WEEKS
     Dates: start: 20100720
  2. VINCRISTINE [Suspect]
     Dates: start: 20100720
  3. RITUXAN [Suspect]
     Dosage: RITUXAN IVPB Q 2 WEEKS
  4. CYTOXAN [Suspect]
  5. PREDNISONE [Suspect]
  6. VICODIN [Concomitant]
  7. PROTONIX [Concomitant]
  8. MORPHINE SULFATE [Concomitant]
  9. COLACE [Concomitant]

REACTIONS (5)
  - ENTEROCOCCUS TEST POSITIVE [None]
  - ESCHERICHIA TEST POSITIVE [None]
  - FEBRILE NEUTROPENIA [None]
  - NAUSEA [None]
  - VOMITING [None]
